FAERS Safety Report 7505720-8 (Version None)
Quarter: 2011Q2

REPORT INFORMATION
  Report Type: 
  Country: None (occurrence: None)
  Receive Date: 20110405
  Receipt Date: 20110125
  Transmission Date: 20111010
  Serious: No
  Sender: FDA-Public Use
  Company Number: 2011IP000014

PATIENT
  Age: 70 Year
  Sex: Male

DRUGS (1)
  1. BEPREVE [Suspect]
     Indication: DRY EYE
     Dosage: 1 GTT;BID;OPH
     Route: 047
     Dates: start: 20110103

REACTIONS (1)
  - EYE IRRITATION [None]
